FAERS Safety Report 18709558 (Version 11)
Quarter: 2022Q1

REPORT INFORMATION
  Report Type: Spontaneous
  Country: PL (occurrence: PL)
  Receive Date: 20210107
  Receipt Date: 20220310
  Transmission Date: 20220423
  Serious: Yes (Hospitalization, Other)
  Sender: FDA-Public Use
  Company Number: PL-JNJFOC-20201254639

PATIENT
  Age: 69 Year
  Sex: Female

DRUGS (12)
  1. SPORANOX [Interacting]
     Active Substance: ITRACONAZOLE
     Indication: Tinea versicolour
     Route: 065
  2. SPORANOX [Suspect]
     Active Substance: ITRACONAZOLE
     Indication: Tinea versicolour
     Route: 048
  3. DABIGATRAN [Interacting]
     Active Substance: DABIGATRAN
     Indication: Anticoagulant therapy
     Dosage: 150 MILLIGRAM, BID
     Route: 048
  4. METOPROLOL [Interacting]
     Active Substance: METOPROLOL
     Indication: Hypertension
     Route: 065
  5. METOPROLOL [Interacting]
     Active Substance: METOPROLOL
     Route: 048
  6. ROSUVASTATIN [Interacting]
     Active Substance: ROSUVASTATIN
     Indication: Hypertension
     Route: 048
  7. AMLODIPINE\INDAPAMIDE\PERINDOPRIL [Suspect]
     Active Substance: AMLODIPINE\INDAPAMIDE\PERINDOPRIL
     Indication: Hypertension
     Dosage: IN THE MORNING
     Route: 065
  8. PROPAFENONE [Interacting]
     Active Substance: PROPAFENONE
     Indication: Arrhythmia prophylaxis
     Route: 048
  9. NIMESULIDE [Suspect]
     Active Substance: NIMESULIDE
     Indication: Analgesic therapy
     Dosage: 100 MILLIGRAM, Q12H
     Route: 065
  10. NIMESULIDE [Suspect]
     Active Substance: NIMESULIDE
     Indication: Antiinflammatory therapy
  11. ASPIRIN [Interacting]
     Active Substance: ASPIRIN
     Indication: Viral infection
     Route: 065
  12. KETOPROFEN [Suspect]
     Active Substance: KETOPROFEN
     Indication: Analgesic therapy
     Dosage: TAKEN AT TIMES
     Route: 065

REACTIONS (6)
  - Syncope [Recovered/Resolved]
  - Gastrointestinal haemorrhage [Recovered/Resolved]
  - Bradycardia [Recovered/Resolved]
  - Asthenia [Recovered/Resolved]
  - Anaemia [Recovered/Resolved]
  - Drug interaction [Recovered/Resolved]
